FAERS Safety Report 15393865 (Version 1)
Quarter: 2018Q3

REPORT INFORMATION
  Report Type: Spontaneous
  Country: GB (occurrence: GB)
  Receive Date: 20180917
  Receipt Date: 20180917
  Transmission Date: 20181010
  Serious: Yes (Other)
  Sender: FDA-Public Use
  Company Number: GB-ALLERGAN-1844735US

PATIENT
  Age: 34 Year
  Sex: Male
  Weight: 80.7 kg

DRUGS (1)
  1. MESALAZINE UNK [Suspect]
     Active Substance: MESALAMINE
     Indication: PROCTITIS
     Route: 048

REACTIONS (1)
  - Atelectasis [Unknown]

NARRATIVE: CASE EVENT DATE: 20180831
